FAERS Safety Report 6732871-8 (Version None)
Quarter: 2010Q2

REPORT INFORMATION
  Report Type: 
  Country: None (occurrence: None)
  Receive Date: 20100519
  Receipt Date: 20100512
  Transmission Date: 20101027
  Serious: Yes (Other)
  Sender: FDA-Public Use
  Company Number: BR-ABBOTT-10P-020-0644088-00

PATIENT
  Sex: Female
  Weight: 75 kg

DRUGS (6)
  1. AKINETON [Suspect]
     Indication: DEMENTIA ALZHEIMER'S TYPE
     Route: 048
  2. AKINETON [Suspect]
     Indication: PARKINSON'S DISEASE
  3. ENALAPRIL [Concomitant]
     Indication: HYPERTENSION
     Route: 048
  4. HYDROCHLOROTHIAZIDE [Concomitant]
     Indication: HYPERTENSION
     Route: 048
  5. RESPIDON [Concomitant]
     Indication: PARKINSON'S DISEASE
     Dates: start: 20100513
  6. DUODOPA [Concomitant]
     Indication: PARKINSON'S DISEASE
     Dates: start: 20100513

REACTIONS (1)
  - HALLUCINATION, VISUAL [None]
